FAERS Safety Report 8733531 (Version 2)
Quarter: 2013Q1

REPORT INFORMATION
  Report Type: Spontaneous
  Country: US (occurrence: US)
  Receive Date: 20120821
  Receipt Date: 20130301
  Transmission Date: 20140127
  Serious: Yes (Hospitalization)
  Sender: FDA-Public Use
  Company Number: US-BAYER-2012-083151

PATIENT
  Age: 28 Year
  Sex: Female
  Weight: 83.9 kg

DRUGS (7)
  1. YAZ [Suspect]
     Indication: ACNE
     Dosage: UNK
     Dates: start: 200806, end: 200808
  2. YAZ [Suspect]
     Indication: CONTRACEPTION
  3. YAZ [Suspect]
     Indication: OVARIAN CYST
  4. EXCEDRIN [Concomitant]
  5. FLAGYL [Concomitant]
     Indication: FUNGAL INFECTION
     Dosage: 500 MG, UNK
     Dates: start: 20080717
  6. PHENERGAN [Concomitant]
     Dosage: 25 MG, UNK
     Dates: start: 20080802
  7. DIFLUCAN [Concomitant]
     Indication: FUNGAL INFECTION

REACTIONS (7)
  - Gallbladder disorder [None]
  - Cholecystitis chronic [None]
  - Hepatic failure [None]
  - Renal failure [None]
  - Pain [None]
  - Injury [None]
  - Pain [None]
